FAERS Safety Report 24856916 (Version 1)
Quarter: 2025Q1

REPORT INFORMATION
  Report Type: Spontaneous
  Country: US (occurrence: US)
  Receive Date: 20250117
  Receipt Date: 20250117
  Transmission Date: 20250409
  Serious: No
  Sender: BRACCO
  Company Number: US-BRACCO-2024US07458

PATIENT
  Age: 54 Year

DRUGS (3)
  1. VUEWAY [Suspect]
     Active Substance: GADOPICLENOL
     Indication: Magnetic resonance imaging
     Dates: start: 20241121, end: 20241121
  2. BENADRYL [Concomitant]
     Active Substance: DIPHENHYDRAMINE HYDROCHLORIDE
     Indication: Premedication
     Dates: start: 202411, end: 202411
  3. PREDNISONE [Concomitant]
     Active Substance: PREDNISONE
     Indication: Premedication
     Dates: start: 202411, end: 202411

REACTIONS (1)
  - Urticaria [Unknown]

NARRATIVE: CASE EVENT DATE: 20241121
